FAERS Safety Report 9082565 (Version 1)
Quarter: 2013Q1

REPORT INFORMATION
  Report Type: Spontaneous
  Country: US (occurrence: US)
  Receive Date: 20130218
  Receipt Date: 20130218
  Transmission Date: 20140127
  Serious: No
  Sender: FDA-Public Use
  Company Number: US-PFIZER INC-2013056917

PATIENT
  Age: 62 Year
  Sex: Male
  Weight: 68.03 kg

DRUGS (3)
  1. PRISTIQ [Suspect]
     Indication: ANXIETY
     Dosage: 50 MG, 1X/DAY
     Dates: start: 20130206, end: 20130210
  2. PRISTIQ [Suspect]
     Indication: DEPRESSION
  3. SYNTHROID [Concomitant]
     Indication: HYPOTHYROIDISM
     Dosage: 125 UG, 1X/DAY DAILY

REACTIONS (2)
  - Insomnia [Unknown]
  - Feeling jittery [Not Recovered/Not Resolved]
